FAERS Safety Report 12424874 (Version 1)
Quarter: 2016Q2

REPORT INFORMATION
  Report Type: Report from Study
  Country: US (occurrence: US)
  Receive Date: 20160601
  Receipt Date: 20160601
  Transmission Date: 20160815
  Serious: Yes (Death, Hospitalization)
  Sender: FDA-Public Use
  Company Number: US-BAYER-2016-025249

PATIENT
  Age: 67 Year
  Sex: Female

DRUGS (20)
  1. DETROL [Concomitant]
     Active Substance: TOLTERODINE TARTRATE
  2. VITAMIN D [Concomitant]
     Active Substance: CHOLECALCIFEROL
  3. VITAMIN C [Concomitant]
     Active Substance: ASCORBIC ACID
  4. MONTELUKAST [Concomitant]
     Active Substance: MONTELUKAST SODIUM
  5. AMLODIPINE [Concomitant]
     Active Substance: AMLODIPINE BESYLATE
  6. NEXIUM [Concomitant]
     Active Substance: ESOMEPRAZOLE MAGNESIUM
  7. ADEMPAS [Suspect]
     Active Substance: RIOCIGUAT
     Indication: PULMONARY ARTERIAL HYPERTENSION
     Dosage: 1 MG, TID
     Route: 048
  8. FUROSEMIDE. [Concomitant]
     Active Substance: FUROSEMIDE
  9. OPSUMIT [Concomitant]
     Active Substance: MACITENTAN
  10. LISINOPRIL. [Concomitant]
     Active Substance: LISINOPRIL
  11. LIVALO [Concomitant]
     Active Substance: PITAVASTATIN CALCIUM
  12. WARFARIN [Concomitant]
     Active Substance: WARFARIN
  13. POTASSIUM [Concomitant]
     Active Substance: POTASSIUM
  14. CALCIUM [Concomitant]
     Active Substance: CALCIUM
  15. VENTOLIN [Concomitant]
     Active Substance: ALBUTEROL SULFATE
  16. CARVEDILOL. [Concomitant]
     Active Substance: CARVEDILOL
  17. ASPIRIN. [Concomitant]
     Active Substance: ASPIRIN
  18. ADEMPAS [Suspect]
     Active Substance: RIOCIGUAT
     Indication: PULMONARY ARTERIAL HYPERTENSION
     Dosage: UNK
     Dates: start: 20150618
  19. FLUTICASONE [Concomitant]
     Active Substance: FLUTICASONE\FLUTICASONE PROPIONATE
  20. ADVAIR HFA [Concomitant]
     Active Substance: FLUTICASONE PROPIONATE\SALMETEROL XINAFOATE

REACTIONS (8)
  - Local swelling [Recovering/Resolving]
  - Fluid retention [Recovering/Resolving]
  - Pain in extremity [None]
  - Arthralgia [None]
  - Death [Fatal]
  - Fluid retention [Not Recovered/Not Resolved]
  - Joint swelling [None]
  - Peripheral swelling [None]

NARRATIVE: CASE EVENT DATE: 20160202
